FAERS Safety Report 19874750 (Version 2)
Quarter: 2023Q2

REPORT INFORMATION
  Report Type: Other
  Country: TN (occurrence: None)
  Receive Date: 20210923
  Receipt Date: 20230427
  Transmission Date: 20230722
  Serious: Yes (Life-Threatening, Hospitalization, Other)
  Sender: FDA-Public Use
  Company Number: TN-MERCK HEALTHCARE KGAA-9265909

PATIENT
  Age: 28 Year
  Sex: Male

DRUGS (1)
  1. REBIF [Suspect]
     Active Substance: INTERFERON BETA-1A
     Indication: Relapsing-remitting multiple sclerosis
     Route: 058
     Dates: start: 2017

REACTIONS (10)
  - Status epilepticus [Unknown]
  - Renal failure [Not Recovered/Not Resolved]
  - Malignant hypertension [Unknown]
  - Complement factor decreased [Unknown]
  - Hypertensive encephalopathy [Unknown]
  - Thrombotic microangiopathy [Unknown]
  - Procedural complication [Unknown]
  - Subcapsular renal haematoma [Unknown]
  - Shock haemorrhagic [Unknown]
  - Injection site scar [Unknown]

NARRATIVE: CASE EVENT DATE: 20200101
